FAERS Safety Report 9760981 (Version 2)
Quarter: 2014Q1

REPORT INFORMATION
  Report Type: Report from Study
  Country: RU (occurrence: RU)
  Receive Date: 20131216
  Receipt Date: 20140311
  Transmission Date: 20141002
  Serious: Yes (Hospitalization)
  Sender: FDA-Public Use
  Company Number: RU-SA-2013SA128615

PATIENT
  Age: 12 Year
  Sex: Male

DRUGS (4)
  1. PLAVIX [Suspect]
     Indication: THROMBOSIS PROPHYLAXIS
     Dosage: 1/2 TAB DAILY
     Route: 048
     Dates: start: 2011
  2. RYTMONORM [Concomitant]
     Indication: ARRHYTHMIA
     Route: 048
     Dates: start: 2011
  3. ASPIRIN [Concomitant]
     Indication: THROMBOSIS PROPHYLAXIS
     Route: 048
     Dates: start: 2011
  4. CAPOTEN [Concomitant]
     Indication: CARDIAC DISORDER
     Route: 048
     Dates: start: 2011

REACTIONS (3)
  - Coronary artery restenosis [Unknown]
  - Off label use [Unknown]
  - Coronary artery bypass [Unknown]
